FAERS Safety Report 17288399 (Version 1)
Quarter: 2020Q1

REPORT INFORMATION
  Report Type: Spontaneous
  Country: US (occurrence: US)
  Receive Date: 20200120
  Receipt Date: 20200120
  Transmission Date: 20200409
  Serious: Yes (Other)
  Sender: FDA-Public Use
  Company Number: US-SA-2019SA238402

PATIENT
  Age: 55 Year
  Sex: Male

DRUGS (5)
  1. ABIRATERONE. [Concomitant]
     Active Substance: ABIRATERONE ACETATE
     Dosage: UNK UNK, UNK
     Route: 065
  2. PREDNISONE. [Concomitant]
     Active Substance: PREDNISONE
     Dosage: UNK UNK, UNK
     Route: 065
  3. DOCETAXEL. [Suspect]
     Active Substance: DOCETAXEL
     Indication: PROSTATE CANCER METASTATIC
     Dosage: 75 MG/M2, QCY, AREA UNDER THE CURVE 6
     Route: 065
  4. DENOSUMAB [Concomitant]
     Active Substance: DENOSUMAB
     Dosage: UNK UNK, UNK
     Route: 065
  5. CARBOPLATIN. [Suspect]
     Active Substance: CARBOPLATIN
     Indication: PROSTATE CANCER METASTATIC
     Dosage: UNK UNK, UNK(AREA UNDER THE CURVE 6)
     Route: 065

REACTIONS (4)
  - Radiation castration [Unknown]
  - Recall phenomenon [Recovered/Resolved]
  - Myositis [Recovered/Resolved]
  - Arthralgia [Recovering/Resolving]
